FAERS Safety Report 8391152-X (Version None)
Quarter: 2012Q2

REPORT INFORMATION
  Report Type: 
  Country: None (occurrence: None)
  Receive Date: 20120517
  Receipt Date: 20120510
  Transmission Date: 20120825
  Serious: Yes (Other)
  Sender: FDA-Public Use
  Company Number: 2010SP020391

PATIENT
  Sex: Female

DRUGS (4)
  1. NASONEX [Suspect]
     Indication: SINUSITIS
     Route: 067
  2. AVELOX [Suspect]
     Indication: SINUSITIS
     Dosage: PO
     Route: 048
  3. SALINE RINSE [Concomitant]
  4. BIAXIN XL [Concomitant]

REACTIONS (5)
  - RASH GENERALISED [None]
  - SERUM SICKNESS [None]
  - PRURITUS [None]
  - PAIN [None]
  - PYREXIA [None]
